FAERS Safety Report 4667175-0 (Version None)
Quarter: 2005Q2

REPORT INFORMATION
  Report Type: 
  Country: None (occurrence: None)
  Receive Date: 20050520
  Receipt Date: 20050509
  Transmission Date: 20051028
  Serious: Yes (Other)
  Sender: FDA-Public Use
  Company Number: CZ-JNJFOC-20050502838

PATIENT
  Sex: Female

DRUGS (10)
  1. REMICADE [Suspect]
     Dosage: 3MG/KG AS PER DAILY DOSE.
     Route: 042
  2. ACTRAPID [Concomitant]
     Dosage: 16-14-8 REPORTED. NO UNITS.
     Route: 058
  3. INSULATARD [Concomitant]
  4. ANOPYRIN [Concomitant]
     Route: 049
  5. BETALOC [Concomitant]
     Route: 049
  6. FOSAMAX [Concomitant]
  7. PREDNISONE TAB [Concomitant]
  8. METHOTREXATE [Concomitant]
  9. ACIDUM FOLICUM [Concomitant]
  10. TRAMADOL HCL [Concomitant]

REACTIONS (1)
  - CERVICAL MYELOPATHY [None]
